FAERS Safety Report 4642866-6 (Version None)
Quarter: 2005Q2

REPORT INFORMATION
  Report Type: 
  Country: None (occurrence: None)
  Receive Date: 20050420
  Receipt Date: 20050404
  Transmission Date: 20051028
  Serious: Yes (Other)
  Sender: FDA-Public Use
  Company Number: EWC050343095

PATIENT
  Age: 49 Year
  Sex: Female
  Weight: 76 kg

DRUGS (1)
  1. ZYPREXA [Suspect]
     Indication: SCHIZOPHRENIA
     Dosage: 10 MG/1 DAY
     Dates: start: 19970903

REACTIONS (4)
  - BRADYCARDIA [None]
  - DIZZINESS [None]
  - HYPOTENSION [None]
  - VENTRICULAR EXTRASYSTOLES [None]
